FAERS Safety Report 14297231 (Version 1)
Quarter: 2017Q4

REPORT INFORMATION
  Report Type: Spontaneous
  Country: US (occurrence: US)
  Receive Date: 20171218
  Receipt Date: 20171218
  Transmission Date: 20180321
  Serious: No
  Sender: FDA-Public Use
  Company Number: US-BAYER-2017-237673

PATIENT
  Age: 90 Year
  Sex: Female
  Weight: 65.99 kg

DRUGS (3)
  1. SENNA [SENNA ALEXANDRINA] [Concomitant]
     Dosage: UNK
  2. COLACE [Concomitant]
     Active Substance: DOCUSATE SODIUM
     Dosage: UNK
  3. MIRALAX [Suspect]
     Active Substance: POLYETHYLENE GLYCOL 3350
     Indication: GASTROINTESTINAL DISORDER
     Dosage: 2 DF, BID
     Route: 048
     Dates: start: 201501

REACTIONS (4)
  - Drug prescribing error [Unknown]
  - Product use issue [Unknown]
  - Product use issue [Unknown]
  - Dysuria [None]

NARRATIVE: CASE EVENT DATE: 201501
